FAERS Safety Report 9257676 (Version 1)
Quarter: 2013Q1

REPORT INFORMATION
  Report Type: Spontaneous
  Country: US (occurrence: None)
  Receive Date: 20121212
  Receipt Date: 20121212
  Transmission Date: 20140127
  Serious: No
  Sender: FDA-Public Use
  Company Number: 1208USA011879

PATIENT
  Age: 58 Year
  Sex: Male

DRUGS (2)
  1. PEGINTRON [Suspect]
     Indication: HEPATITIS C
     Dates: start: 20120723
  2. RIBAVIRIN [Suspect]
     Indication: HEPATITIS C
     Dates: start: 20120723

REACTIONS (2)
  - Influenza like illness [None]
  - Drug dose omission [None]
